FAERS Safety Report 10232628 (Version 1)
Quarter: 2014Q2

REPORT INFORMATION
  Report Type: Spontaneous
  Country: US (occurrence: None)
  Receive Date: 20140506
  Receipt Date: 20140506
  Transmission Date: 20141212
  Serious: Yes (Other)
  Sender: FDA-Public Use
  Company Number: 1224597

PATIENT
  Sex: Male

DRUGS (3)
  1. AVASTIN (BEVACIZUMAB) [Suspect]
     Indication: RENAL CELL CARCINOMA
     Dates: start: 20130418
  2. XELODA (CAPECITABINE) [Suspect]
     Indication: RENAL CELL CARCINOMA
     Dates: start: 20130418
  3. GEMZAR (GEMCITABINE HYDROCHLORIDE) [Concomitant]

REACTIONS (4)
  - Hypertension [None]
  - Chest pain [None]
  - Full blood count decreased [None]
  - Mental impairment [None]
